FAERS Safety Report 13241017 (Version 1)
Quarter: 2017Q1

REPORT INFORMATION
  Report Type: Spontaneous
  Country: US (occurrence: US)
  Receive Date: 20170216
  Receipt Date: 20170216
  Transmission Date: 20170428
  Serious: No
  Sender: FDA-Public Use
  Company Number: US-RELYPSA-RLY2016004444

PATIENT
  Sex: Male

DRUGS (17)
  1. VITAMIN B12 [Concomitant]
     Active Substance: CYANOCOBALAMIN
  2. IPRATROPIUM/ALBUTEROL [Concomitant]
     Active Substance: ALBUTEROL\IPRATROPIUM
  3. ALLOPURINOL. [Concomitant]
     Active Substance: ALLOPURINOL
  4. TYLENOL PM EXTRA STRENGTH [Concomitant]
     Active Substance: ACETAMINOPHEN\DIPHENHYDRAMINE HYDROCHLORIDE
  5. ATENOLOL. [Concomitant]
     Active Substance: ATENOLOL
  6. VITAMIN D3 [Concomitant]
     Active Substance: CHOLECALCIFEROL
  7. NIACIN. [Concomitant]
     Active Substance: NIACIN
  8. GLIPIZIDE. [Concomitant]
     Active Substance: GLIPIZIDE
  9. GABAPENTIN. [Concomitant]
     Active Substance: GABAPENTIN
  10. PRESERVISION AREDS [Concomitant]
     Active Substance: MINERALS\VITAMINS
  11. MICONAZOLE. [Concomitant]
     Active Substance: MICONAZOLE
  12. ASPIRIN                            /00002701/ [Concomitant]
     Active Substance: ASPIRIN
  13. VELTASSA [Suspect]
     Active Substance: PATIROMER
     Indication: HYPERKALAEMIA
     Dosage: 8.4 G, QD
     Route: 048
  14. MAGNESIUM OXIDE. [Concomitant]
     Active Substance: MAGNESIUM OXIDE
  15. FOLIC ACID. [Concomitant]
     Active Substance: FOLIC ACID
  16. FERROUS SULFATE. [Concomitant]
     Active Substance: FERROUS SULFATE
  17. BUMETANIDE. [Concomitant]
     Active Substance: BUMETANIDE

REACTIONS (1)
  - Dysphonia [Unknown]
